FAERS Safety Report 5655662-8 (Version None)
Quarter: 2008Q1

REPORT INFORMATION
  Report Type: 
  Country: None (occurrence: None)
  Receive Date: 20080307
  Receipt Date: 20080229
  Transmission Date: 20080703
  Serious: No
  Sender: FDA-Public Use
  Company Number: US-BAXTER-2008BH000197

PATIENT
  Age: 63 Year
  Sex: Female
  Weight: 95 kg

DRUGS (26)
  1. HEPARIN SODIUM [Suspect]
     Indication: THROMBOSIS PROPHYLAXIS
     Route: 010
     Dates: start: 20071220, end: 20071231
  2. HEPARIN SODIUM [Suspect]
     Route: 010
     Dates: start: 20071220, end: 20071231
  3. HEPARIN SODIUM [Suspect]
     Route: 010
     Dates: start: 20071220, end: 20071231
  4. HEPARIN SODIUM [Suspect]
     Route: 010
     Dates: start: 20071220, end: 20071231
  5. HEPARIN SODIUM [Suspect]
     Route: 010
     Dates: start: 20071220, end: 20071231
  6. HEPARIN SODIUM [Suspect]
     Route: 010
     Dates: start: 20071220, end: 20071231
  7. HEPARIN SODIUM [Suspect]
     Route: 010
     Dates: start: 20071220, end: 20071231
  8. HEPARIN SODIUM [Suspect]
     Route: 010
     Dates: start: 20071220, end: 20071231
  9. HEPARIN SODIUM [Suspect]
     Route: 010
     Dates: start: 20071220, end: 20071231
  10. HEPARIN SODIUM [Suspect]
     Route: 010
     Dates: start: 20071220, end: 20071231
  11. HEPARIN SODIUM [Suspect]
     Route: 010
     Dates: start: 20071220, end: 20071231
  12. HEPARIN SODIUM [Suspect]
     Route: 010
     Dates: start: 20071220, end: 20071231
  13. HEPARIN SODIUM [Suspect]
     Route: 010
     Dates: start: 20071220, end: 20071231
  14. HEPARIN SODIUM [Suspect]
     Route: 010
     Dates: start: 20071220, end: 20071231
  15. HEPARIN SODIUM [Suspect]
     Route: 010
     Dates: start: 20071220, end: 20071231
  16. HEPARIN SODIUM [Suspect]
     Route: 010
     Dates: start: 20071220, end: 20071231
  17. SODIUM CHLORIDE INJ [Concomitant]
     Indication: DRUG USE FOR UNKNOWN INDICATION
     Dosage: DOSE UNIT:UNKNOWN
     Route: 010
     Dates: start: 20071201, end: 20071201
  18. HECTOROL [Concomitant]
     Indication: DRUG USE FOR UNKNOWN INDICATION
     Route: 042
  19. ARANESP [Concomitant]
     Indication: DRUG USE FOR UNKNOWN INDICATION
     Route: 042
  20. HYDRALAZINE HCL [Concomitant]
     Indication: DRUG USE FOR UNKNOWN INDICATION
     Route: 065
  21. FOLIC ACID [Concomitant]
     Indication: DRUG USE FOR UNKNOWN INDICATION
     Route: 065
  22. ASPIRIN [Concomitant]
     Indication: DRUG USE FOR UNKNOWN INDICATION
     Dosage: DOSE UNIT:UNKNOWN
     Route: 065
  23. LISINOPRIL [Concomitant]
     Indication: DRUG USE FOR UNKNOWN INDICATION
     Dosage: DOSE UNIT:UNKNOWN
     Route: 065
  24. FUROSEMIDE [Concomitant]
     Indication: DRUG USE FOR UNKNOWN INDICATION
     Dosage: DOSE UNIT:UNKNOWN
     Route: 065
  25. RENAGEL [Concomitant]
     Indication: DRUG USE FOR UNKNOWN INDICATION
     Dosage: DOSE UNIT:UNKNOWN
     Route: 065
  26. TOPROL-XL [Concomitant]
     Indication: DRUG USE FOR UNKNOWN INDICATION
     Dosage: DOSE UNIT:UNKNOWN
     Route: 065

REACTIONS (5)
  - CHEST DISCOMFORT [None]
  - DIZZINESS [None]
  - DYSPNOEA [None]
  - NAUSEA [None]
  - PHARYNGEAL OEDEMA [None]
